FAERS Safety Report 9302069 (Version 3)
Quarter: 2013Q3

REPORT INFORMATION
  Report Type: Spontaneous
  Country: IT (occurrence: IT)
  Receive Date: 20130521
  Receipt Date: 20130702
  Transmission Date: 20140515
  Serious: Yes (Other)
  Sender: FDA-Public Use
  Company Number: IT-BAXTER-2013BAX018110

PATIENT
  Age: 66 Year
  Sex: Female
  Weight: 45 kg

DRUGS (5)
  1. ENDOXAN BAXTER [Suspect]
     Indication: BREAST CANCER
     Route: 042
     Dates: start: 20130121, end: 20130510
  2. FLUOROURACILE [Suspect]
     Indication: BREAST CANCER
     Route: 042
     Dates: start: 20130121, end: 20130510
  3. EPIRUBICINA [Suspect]
     Indication: BREAST CANCER
     Route: 042
     Dates: start: 20130121, end: 20130510
  4. EUTIROX [Concomitant]
     Indication: HYPOTHYROIDISM
     Route: 048
  5. ALIFLUS [Concomitant]
     Indication: ASTHMA
     Route: 048

REACTIONS (6)
  - Asthenia [Recovered/Resolved]
  - Constipation [Recovered/Resolved]
  - Neutropenia [Recovered/Resolved]
  - Asthenia [Unknown]
  - Constipation [Unknown]
  - Neutropenia [Recovered/Resolved]
